FAERS Safety Report 9421995 (Version 1)
Quarter: 2013Q3

REPORT INFORMATION
  Report Type: Spontaneous
  Country: US (occurrence: US)
  Receive Date: 20130726
  Receipt Date: 20130726
  Transmission Date: 20140515
  Serious: Yes (Other)
  Sender: FDA-Public Use
  Company Number: US-JNJFOC-20130712217

PATIENT
  Sex: Female
  Weight: 68.04 kg

DRUGS (1)
  1. HALDOL [Suspect]
     Indication: SEASONAL AFFECTIVE DISORDER
     Route: 030

REACTIONS (2)
  - Gait disturbance [Unknown]
  - Drug hypersensitivity [Unknown]
